FAERS Safety Report 5877427-4 (Version None)
Quarter: 2008Q3

REPORT INFORMATION
  Report Type: 
  Country: None (occurrence: None)
  Receive Date: 20080909
  Receipt Date: 20080902
  Transmission Date: 20090109
  Serious: Yes (Death)
  Sender: FDA-Public Use
  Company Number: 2008AL009946

PATIENT
  Age: 69 Year
  Sex: Male

DRUGS (7)
  1. DIGOXIN [Suspect]
     Indication: CARDIAC DISORDER
     Dosage: 0.125/0.25MG, QOD, PO
     Route: 048
     Dates: start: 20070301, end: 20070901
  2. ENALAPRIL MALEATE [Concomitant]
  3. ZYPREXA [Concomitant]
  4. METFORMIN HCL [Concomitant]
  5. VERAPAMIL [Concomitant]
  6. PRAVASTIN [Concomitant]
  7. PRILOSEC [Concomitant]

REACTIONS (2)
  - ASTHENIA [None]
  - FATIGUE [None]
